FAERS Safety Report 24880783 (Version 1)
Quarter: 2025Q1

REPORT INFORMATION
  Report Type: Report from Study
  Country: UY (occurrence: UY)
  Receive Date: 20250123
  Receipt Date: 20250123
  Transmission Date: 20250409
  Serious: Yes (Hospitalization)
  Sender: ABBVIE
  Company Number: UY-ABBVIE-6097821

PATIENT
  Age: 34 Year
  Sex: Female

DRUGS (1)
  1. RINVOQ [Suspect]
     Active Substance: UPADACITINIB
     Indication: Rheumatoid arthritis
     Route: 048
     Dates: start: 20240131

REACTIONS (6)
  - Food poisoning [Recovering/Resolving]
  - Hypoglycaemia [Recovering/Resolving]
  - Rheumatoid arthritis [Recovering/Resolving]
  - Limb injury [Unknown]
  - Contusion [Not Recovered/Not Resolved]
  - Dehydration [Not Recovered/Not Resolved]

NARRATIVE: CASE EVENT DATE: 20241201
